FAERS Safety Report 16774268 (Version 1)
Quarter: 2019Q3

REPORT INFORMATION
  Report Type: Report from Study
  Country: US (occurrence: US)
  Receive Date: 20190905
  Receipt Date: 20190905
  Transmission Date: 20191005
  Serious: No
  Sender: FDA-Public Use
  Company Number: PHEH2019US036308

PATIENT
  Age: 32 Year
  Sex: Female

DRUGS (1)
  1. COSENTYX [Suspect]
     Active Substance: SECUKINUMAB
     Indication: ANKYLOSING SPONDYLITIS
     Dosage: 1 ML, Q4W (INJECT 1ML SUBCUTANEOUSLY EVERY 4 WEEKS)
     Route: 058
     Dates: start: 201904

REACTIONS (2)
  - Drug ineffective [Unknown]
  - Back pain [Unknown]
